FAERS Safety Report 5831474-7 (Version None)
Quarter: 2008Q3

REPORT INFORMATION
  Report Type: 
  Country: None (occurrence: None)
  Receive Date: 20080801
  Receipt Date: 20080722
  Transmission Date: 20090109
  Serious: Yes (Other)
  Sender: FDA-Public Use
  Company Number: US-PFIZER INC-2008061086

PATIENT
  Sex: Male
  Weight: 97.727 kg

DRUGS (2)
  1. DILANTIN [Suspect]
     Indication: CONVULSION
     Dosage: DAILY DOSE:400MG
  2. PHENOBARBITAL TAB [Concomitant]

REACTIONS (1)
  - HALLUCINATION [None]
